FAERS Safety Report 21811368 (Version 1)
Quarter: 2023Q1

REPORT INFORMATION
  Report Type: Spontaneous
  Country: US (occurrence: US)
  Receive Date: 20230103
  Receipt Date: 20230103
  Transmission Date: 20230417
  Serious: No
  Sender: FDA-Public Use
  Company Number: US-PFIZER INC-202201401493

PATIENT
  Age: 76 Year
  Sex: Female
  Weight: 44.45 kg

DRUGS (1)
  1. PAXLOVID [Suspect]
     Active Substance: NIRMATRELVIR\RITONAVIR
     Indication: COVID-19 treatment
     Dosage: 3 DF, 2X/DAY (3 TABLETS IN THE MORNING, 3 TABLETS IN THE EVENING)
     Dates: start: 20221211, end: 20221215

REACTIONS (6)
  - Stomatitis [Recovering/Resolving]
  - Oral disorder [Recovering/Resolving]
  - Tongue disorder [Recovering/Resolving]
  - Glossodynia [Recovering/Resolving]
  - Glossitis [Unknown]
  - Ageusia [Unknown]

NARRATIVE: CASE EVENT DATE: 20221201
